FAERS Safety Report 4652636-0 (Version None)
Quarter: 2005Q2

REPORT INFORMATION
  Report Type: 
  Country: None (occurrence: None)
  Receive Date: 20050502
  Receipt Date: 20050427
  Transmission Date: 20051028
  Serious: Yes (Hospitalization, Disabling)
  Sender: FDA-Public Use
  Company Number: RS005009-J

PATIENT
  Age: 67 Year
  Sex: Female
  Weight: 55 kg

DRUGS (21)
  1. RABEPRAZOLE SODIUM [Suspect]
     Indication: REFLUX OESOPHAGITIS
     Dosage: 20 MG, 2 IN 1 D, ORAL
     Route: 048
     Dates: start: 20050208, end: 20050215
  2. TAGAMET [Suspect]
     Indication: GASTROINTESTINAL DISORDER
     Dosage: 400 MG, 2 IN 1 D, ORAL
     Route: 048
     Dates: start: 20041227, end: 20050208
  3. TAGAMET [Suspect]
     Indication: PROPHYLAXIS
     Dosage: 400 MG, 2 IN 1 D, ORAL
     Route: 048
     Dates: start: 20041227, end: 20050208
  4. URSODIOL [Suspect]
     Indication: HEPATITIS C
     Dosage: 600 MG, 3 IN 1 D, ORAL
     Route: 048
     Dates: start: 20041227
  5. AMINOLEBAN EN (AMINOLEBAN EN) [Suspect]
     Indication: NUTRITIONAL SUPPORT
     Dosage: 100 MG, 2 IN 1 D, ORAL
     Route: 048
     Dates: start: 20041227, end: 20050215
  6. LOXONIN (LOXOPROFEN SODIUM) [Concomitant]
     Indication: CANCER PAIN
     Dosage: 180MG, 3 IN 1 D, ORAL
     Route: 048
     Dates: start: 20050124, end: 20050215
  7. LEVOTHYROXINE SODIUM [Suspect]
     Indication: HYPOTHYROIDISM
     Dosage: 100 MCG, 2 IN 1 D, ORAL
     Route: 048
  8. GEMZAR [Suspect]
     Indication: PANCREATIC CARCINOMA
     Dosage: SEE IMAGE
     Dates: start: 20050125, end: 20050125
  9. GEMZAR [Suspect]
     Indication: PANCREATIC CARCINOMA
     Dosage: SEE IMAGE
     Dates: start: 20050201, end: 20050201
  10. GEMZAR [Suspect]
     Indication: PANCREATIC CARCINOMA
     Dosage: SEE IMAGE
     Dates: start: 20050215, end: 20050215
  11. GEMZAR [Suspect]
     Indication: PANCREATIC CARCINOMA
     Dosage: SEE IMAGE
     Dates: start: 20041221
  12. ZOFRAN ZYDIS (ONDANSETRON HYDROCHLORIDE) [Concomitant]
  13. PURSENNID (SENNA LEAF) [Concomitant]
  14. LEVOFLOXACIN [Concomitant]
  15. LASIX [Concomitant]
  16. VOLTAREN [Concomitant]
  17. NAUZELIN (DOMPERIDONE) [Concomitant]
  18. MARZULENE S (MARZULENE S) [Concomitant]
  19. SEROTONE (AZASETRON HYDROCHLORIDE) [Concomitant]
  20. DECADRON SRC [Concomitant]
  21. PHYSISALZ-PL (SODIUM CHLORIDE) [Concomitant]

REACTIONS (8)
  - GASTROINTESTINAL DISORDER [None]
  - HYPERKALAEMIA [None]
  - HYPERTENSION [None]
  - NEPHROTIC SYNDROME [None]
  - POST PROCEDURAL NAUSEA [None]
  - RADIATION INJURY [None]
  - RENAL FAILURE ACUTE [None]
  - URINARY RETENTION [None]
